FAERS Safety Report 20427656 (Version 1)
Quarter: 2022Q1

REPORT INFORMATION
  Report Type: Report from Study
  Country: US (occurrence: US)
  Receive Date: 20220204
  Receipt Date: 20220204
  Transmission Date: 20220423
  Serious: No
  Sender: FDA-Public Use
  Company Number: US-EXELIXIS-CABO-21042511

PATIENT
  Sex: Male

DRUGS (1)
  1. CABOMETYX [Suspect]
     Active Substance: CABOZANTINIB S-MALATE
     Indication: Hepatocellular carcinoma
     Dosage: 20 MG, QD
     Dates: start: 20210622, end: 20210722

REACTIONS (5)
  - Hypoaesthesia oral [Recovered/Resolved]
  - Tongue erythema [Recovered/Resolved]
  - Varicose ulceration [Recovering/Resolving]
  - Oral pain [Recovered/Resolved]
  - Dry mouth [Unknown]
